FAERS Safety Report 17900458 (Version 1)
Quarter: 2020Q2

REPORT INFORMATION
  Report Type: Spontaneous
  Country: US (occurrence: US)
  Receive Date: 20200616
  Receipt Date: 20200616
  Transmission Date: 20200714
  Serious: Yes (Other)
  Sender: FDA-Public Use
  Company Number: None

PATIENT
  Age: 67 Year
  Sex: Male

DRUGS (10)
  1. AMIODARONE 200MG [Concomitant]
     Active Substance: AMIODARONE
     Dates: start: 20190809
  2. PREDNISONE 10MG [Concomitant]
     Active Substance: PREDNISONE
     Dates: start: 20200511
  3. VENTOLIN [Concomitant]
     Active Substance: ALBUTEROL SULFATE
     Dates: start: 20181124
  4. METOPROLOL SUCC 25MG [Concomitant]
     Dates: start: 20190115
  5. XARELTO [Concomitant]
     Active Substance: RIVAROXABAN
     Dates: start: 20190315
  6. MAVYRET [Suspect]
     Active Substance: GLECAPREVIR\PIBRENTASVIR
     Indication: HEPATITIS C
     Route: 048
     Dates: start: 20200526, end: 20200526
  7. ALBUTEROL 0.083% [Concomitant]
     Active Substance: ALBUTEROL
     Dates: start: 20200131
  8. LISINOPRIL. [Concomitant]
     Active Substance: LISINOPRIL
     Dates: start: 20190514
  9. DESCOVY [Concomitant]
     Active Substance: EMTRICITABINE\TENOFOVIR ALAFENAMIDE FUMARATE
     Dates: start: 20190622
  10. SPIRIVA [Concomitant]
     Active Substance: TIOTROPIUM BROMIDE MONOHYDRATE
     Dates: start: 20200511

REACTIONS (1)
  - Dyspnoea [None]

NARRATIVE: CASE EVENT DATE: 20200526
